FAERS Safety Report 4335255-5 (Version None)
Quarter: 2004Q2

REPORT INFORMATION
  Report Type: 
  Country: None (occurrence: None)
  Receive Date: 20040408
  Receipt Date: 20040407
  Transmission Date: 20050107
  Serious: Yes (Hospitalization)
  Sender: FDA-Public Use
  Company Number: FR-MERCK-0404FRA00024

PATIENT
  Age: 59 Year
  Sex: Female

DRUGS (3)
  1. FOSAMAX [Suspect]
     Indication: OSTEOPOROSIS
     Route: 048
     Dates: start: 20000101, end: 20000101
  2. FOSAMAX [Suspect]
     Route: 048
     Dates: start: 20040101, end: 20040301
  3. INTERFERON (UNSPECIFIED) [Concomitant]
     Indication: MULTIPLE SCLEROSIS
     Route: 065

REACTIONS (2)
  - HEPATIC ENZYME INCREASED [None]
  - HEPATITIS [None]
